FAERS Safety Report 12917658 (Version 2)
Quarter: 2018Q4

REPORT INFORMATION
  Report Type: Spontaneous
  Country: US (occurrence: US)
  Receive Date: 20161107
  Receipt Date: 20181030
  Transmission Date: 20190204
  Serious: No
  Sender: FDA-Public Use
  Company Number: US-PFIZER INC-2016512535

PATIENT
  Age: 79 Year
  Sex: Female

DRUGS (9)
  1. VITAMIN D3 [Suspect]
     Active Substance: CHOLECALCIFEROL
     Dosage: UNK
  2. DEMADEX [Suspect]
     Active Substance: TORSEMIDE
     Dosage: UNK
  3. CULTURELLE [Suspect]
     Active Substance: LACTOBACILLUS RHAMNOSUS
     Dosage: UNK
  4. SYMBICORT [Suspect]
     Active Substance: BUDESONIDE\FORMOTEROL FUMARATE DIHYDRATE
     Dosage: UNK
  5. LIPITOR [Suspect]
     Active Substance: ATORVASTATIN CALCIUM
     Dosage: UNK
  6. SPIRIVA [Suspect]
     Active Substance: TIOTROPIUM BROMIDE MONOHYDRATE
     Dosage: UNK
  7. COUMADIN [Suspect]
     Active Substance: WARFARIN SODIUM
     Dosage: UNK
  8. MEVACOR [Suspect]
     Active Substance: LOVASTATIN
     Dosage: UNK
  9. PAXIL [Suspect]
     Active Substance: PAROXETINE HYDROCHLORIDE
     Dosage: UNK

REACTIONS (1)
  - Drug hypersensitivity [Unknown]
